FAERS Safety Report 7303650-8 (Version None)
Quarter: 2011Q1

REPORT INFORMATION
  Report Type: 
  Country: None (occurrence: None)
  Receive Date: 20110221
  Receipt Date: 20110214
  Transmission Date: 20110831
  Serious: Yes (Hospitalization)
  Sender: FDA-Public Use
  Company Number: IT-BAXTER-2011BH003944

PATIENT
  Age: 21 Year
  Sex: Female

DRUGS (3)
  1. CYCLOPHOSPHAMIDE [Suspect]
     Indication: BREAST CANCER
     Route: 048
     Dates: start: 20110106, end: 20110113
  2. METHOTREXATE [Suspect]
     Indication: BREAST CANCER
     Route: 048
     Dates: start: 20110106, end: 20110113
  3. DEXAMETHASONE [Suspect]
     Indication: BREAST CANCER
     Route: 030
     Dates: start: 20110106, end: 20110113

REACTIONS (2)
  - MUCOSAL INFLAMMATION [None]
  - URTICARIA PAPULAR [None]
